FAERS Safety Report 8824820 (Version 1)
Quarter: 2012Q4

REPORT INFORMATION
  Report Type: 
  Country: US (occurrence: US)
  Receive Date: 20121004
  Receipt Date: 20121004
  Transmission Date: 20130627
  Serious: No
  Sender: FDA-Public Use
  Company Number: US-ROXANE LABORATORIES, INC.-2012-RO-01914RO

PATIENT
  Sex: Male
  Weight: 75 kg

DRUGS (4)
  1. FLECAINIDE [Suspect]
     Indication: ATRIAL FIBRILLATION
     Dosage: 100 mg
     Route: 048
     Dates: start: 20120813
  2. ATENOLOL [Concomitant]
     Dosage: 25 mg
  3. ASPIRIN [Concomitant]
     Dosage: 325 mg
  4. SIMVASTATIN [Concomitant]
     Dosage: 40 mg

REACTIONS (1)
  - Fatigue [Recovered/Resolved]
